FAERS Safety Report 7357655-1 (Version None)
Quarter: 2011Q1

REPORT INFORMATION
  Report Type: 
  Country: None (occurrence: None)
  Receive Date: 20110317
  Receipt Date: 20110310
  Transmission Date: 20110831
  Serious: Yes (Other)
  Sender: FDA-Public Use
  Company Number: US-ELI_LILLY_AND_COMPANY-US201007002928

PATIENT
  Sex: Female

DRUGS (4)
  1. FORTEO [Suspect]
     Indication: OSTEOPOROSIS
     Dosage: 20 UG, DAILY (1/D)
     Dates: start: 20100622, end: 20100708
  2. FORTEO [Suspect]
     Dosage: 20 UG, DAILY (1/D)
  3. FORTEO [Suspect]
     Dosage: 20 UG, DAILY (1/D)
  4. HOMEOPATHIC PREPARATION [Concomitant]

REACTIONS (12)
  - NECROSIS [None]
  - PAIN IN EXTREMITY [None]
  - INJECTION SITE DISCOLOURATION [None]
  - ABDOMINAL DISCOMFORT [None]
  - EATING DISORDER [None]
  - JOINT CREPITATION [None]
  - DIZZINESS [None]
  - FATIGUE [None]
  - INJECTION SITE HAEMATOMA [None]
  - NAUSEA [None]
  - ABDOMINAL PAIN UPPER [None]
  - GASTRIC DISORDER [None]
